FAERS Safety Report 6770019-4 (Version None)
Quarter: 2010Q2

REPORT INFORMATION
  Report Type: 
  Country: None (occurrence: None)
  Receive Date: 20100615
  Receipt Date: 20100607
  Transmission Date: 20101027
  Serious: Yes (Other)
  Sender: FDA-Public Use
  Company Number: US-JNJFOC-20100502926

PATIENT
  Sex: Male

DRUGS (4)
  1. CHILDREN'S MOTRIN [Suspect]
     Route: 065
  2. CHILDREN'S MOTRIN [Suspect]
     Indication: DRUG USE FOR UNKNOWN INDICATION
     Route: 065
  3. CHILDREN'S TYLENOL SUSPENSION [Suspect]
  4. CHILDREN'S TYLENOL SUSPENSION [Suspect]
     Indication: DRUG USE FOR UNKNOWN INDICATION

REACTIONS (5)
  - DELIRIUM [None]
  - HALLUCINATION [None]
  - HEART RATE INCREASED [None]
  - PRODUCT MEASURED POTENCY ISSUE [None]
  - VERTIGO [None]
